FAERS Safety Report 15632855 (Version 3)
Quarter: 2019Q3

REPORT INFORMATION
  Report Type: Spontaneous
  Country: GB (occurrence: GB)
  Receive Date: 20181119
  Receipt Date: 20190826
  Transmission Date: 20191004
  Serious: Yes (Death)
  Sender: FDA-Public Use
  Company Number: GB-NAPPMUNDI-GBR-2018-0061670

PATIENT
  Age: 11 Year
  Sex: Male
  Weight: 31 kg

DRUGS (5)
  1. GABAPENTIN. [Concomitant]
     Active Substance: GABAPENTIN
     Dosage: UNK
  2. FENTANYL. [Concomitant]
     Active Substance: FENTANYL
     Dosage: UNK
  3. METHADONE [Concomitant]
     Active Substance: METHADONE HYDROCHLORIDE
     Dosage: UNK
  4. OXYCODONE HYDROCHLORIDE. [Suspect]
     Active Substance: OXYCODONE HYDROCHLORIDE
     Indication: PRODUCT USED FOR UNKNOWN INDICATION
     Dosage: UNK, (80-100MCG/KG, CONTINUOUS)
     Route: 042
     Dates: start: 20170113
  5. MIDAZOLAM [Interacting]
     Active Substance: MIDAZOLAM HYDROCHLORIDE
     Indication: PRODUCT USED FOR UNKNOWN INDICATION
     Dosage: (STAT AT 60MCG/KG/HR INCREASED TO 120MCG/KG/HR, CONTINUOUS)
     Route: 042
     Dates: start: 20170113, end: 20170119

REACTIONS (3)
  - Coma [Fatal]
  - Respiratory depression [Fatal]
  - Drug interaction [Fatal]

NARRATIVE: CASE EVENT DATE: 20170117
